FAERS Safety Report 12739233 (Version 1)
Quarter: 2016Q3

REPORT INFORMATION
  Report Type: Spontaneous
  Country: CH (occurrence: CH)
  Receive Date: 20160913
  Receipt Date: 20160913
  Transmission Date: 20161109
  Serious: Yes (Hospitalization, Other)
  Sender: FDA-Public Use
  Company Number: CH-ELI_LILLY_AND_COMPANY-CH201609004135

PATIENT
  Age: 69 Year
  Sex: Female

DRUGS (8)
  1. ZYPREXA [Suspect]
     Active Substance: OLANZAPINE
     Indication: AGITATION
     Dosage: 1 DF, UNKNOWN
     Route: 048
     Dates: start: 20160707, end: 20160718
  2. EBIXA [Concomitant]
     Active Substance: MEMANTINE HYDROCHLORIDE
     Indication: DEMENTIA ALZHEIMER^S TYPE
     Dosage: 10 MG, BID
     Route: 048
     Dates: start: 2014
  3. TEMESTA                            /00273201/ [Suspect]
     Active Substance: LORAZEPAM
     Indication: AGITATION
     Dosage: 1 DF, UNKNOWN
     Route: 048
     Dates: start: 20160707, end: 20160718
  4. REMERON [Concomitant]
     Active Substance: MIRTAZAPINE
     Indication: PRODUCT USED FOR UNKNOWN INDICATION
     Dosage: UNK
     Route: 048
     Dates: start: 20160808, end: 20160815
  5. SEROQUEL [Suspect]
     Active Substance: QUETIAPINE FUMARATE
     Indication: AGITATION
     Dosage: 62.5 MG, QD (INCREASED GRADUALLY TO 62.5 MG/D (12.5-25-25), WITHOUT BEING EFFECTIVE)
     Route: 048
     Dates: start: 20160727, end: 20160819
  6. TRITTICO [Concomitant]
     Active Substance: TRAZODONE HYDROCHLORIDE
     Indication: PRODUCT USED FOR UNKNOWN INDICATION
     Dosage: 50 MG, QD
     Route: 048
     Dates: start: 20160816, end: 20160819
  7. LYRICA [Concomitant]
     Active Substance: PREGABALIN
     Indication: PRODUCT USED FOR UNKNOWN INDICATION
     Dosage: 75 MG, BID
     Route: 048
     Dates: start: 20160817, end: 20160819
  8. HALDOL [Suspect]
     Active Substance: HALOPERIDOL
     Indication: AGITATION
     Dosage: 1 DF, UNKNOWN
     Route: 048
     Dates: start: 201512, end: 20160706

REACTIONS (11)
  - Condition aggravated [Recovered/Resolved]
  - Akathisia [Not Recovered/Not Resolved]
  - Epilepsy [Unknown]
  - Abnormal behaviour [Unknown]
  - Fall [Unknown]
  - Dysphagia [Recovered/Resolved]
  - Agitation [Recovered/Resolved]
  - Dementia Alzheimer^s type [Not Recovered/Not Resolved]
  - Restlessness [Not Recovered/Not Resolved]
  - Hallucinations, mixed [Recovered/Resolved]
  - Muscle rigidity [Recovered/Resolved]

NARRATIVE: CASE EVENT DATE: 201606
